FAERS Safety Report 5103884-7 (Version None)
Quarter: 2006Q3

REPORT INFORMATION
  Report Type: 
  Country: None (occurrence: None)
  Receive Date: 20060913
  Receipt Date: 20060907
  Transmission Date: 20061208
  Serious: Yes (Death, Life-Threatening, Hospitalization, Disabling, Other)
  Sender: FDA-Public Use
  Company Number: GB-GLAXOSMITHKLINE-B0437640A

PATIENT
  Sex: Male

DRUGS (6)
  1. AVANDAMET [Suspect]
     Indication: DRUG USE FOR UNKNOWN INDICATION
     Route: 048
     Dates: end: 20060601
  2. ALFACALCIDOL [Concomitant]
     Dosage: .25UG PER DAY
  3. ASPIRIN [Concomitant]
     Dosage: 75MG PER DAY
     Route: 048
  4. ATORVASTATIN CALCIUM [Concomitant]
     Dosage: 20MG PER DAY
  5. FINASTERIDE [Concomitant]
     Dosage: 5MG PER DAY
  6. LISINOPRIL [Concomitant]
     Route: 048

REACTIONS (6)
  - ABDOMINAL PAIN [None]
  - HEPATIC FAILURE [None]
  - JAUNDICE [None]
  - NAUSEA [None]
  - VOMITING [None]
  - WEIGHT DECREASED [None]
